FAERS Safety Report 8282989-6 (Version None)
Quarter: 2012Q2

REPORT INFORMATION
  Report Type: 
  Country: None (occurrence: None)
  Receive Date: 20120413
  Receipt Date: 20120409
  Transmission Date: 20120825
  Serious: Yes (Hospitalization, Other)
  Sender: FDA-Public Use
  Company Number: US-BAYER-2012-016598

PATIENT
  Age: 21 Year
  Sex: Female
  Weight: 60 kg

DRUGS (2)
  1. YASMIN [Suspect]
     Dosage: UNK
     Dates: start: 20051101, end: 20080410
  2. YASMIN [Suspect]
     Dosage: UNK
     Dates: start: 20040101, end: 20060101

REACTIONS (3)
  - CHOLECYSTITIS CHRONIC [None]
  - CHOLECYSTECTOMY [None]
  - RENAL DISORDER [None]
